FAERS Safety Report 5651168-0 (Version None)
Quarter: 2008Q1

REPORT INFORMATION
  Report Type: 
  Country: None (occurrence: None)
  Receive Date: 20080305
  Receipt Date: 20080227
  Transmission Date: 20080703
  Serious: Yes (Death, Hospitalization)
  Sender: FDA-Public Use
  Company Number: US-BRISTOL-MYERS SQUIBB COMPANY-13561329

PATIENT
  Age: 74 Year
  Sex: Male
  Weight: 90 kg

DRUGS (16)
  1. METHOTREXATE [Suspect]
     Route: 042
     Dates: start: 20060508, end: 20060509
  2. MESNA [Suspect]
     Route: 042
     Dates: start: 20060606, end: 20060612
  3. POTASSIUM CHLORIDE [Suspect]
     Dates: start: 20060606, end: 20060612
  4. ARANESP [Suspect]
     Indication: ANAEMIA OF MALIGNANT DISEASE
     Route: 058
     Dates: start: 20060412, end: 20060612
  5. FUROSEMIDE [Concomitant]
  6. PLATELET CONCENTRATE, HUMAN [Concomitant]
     Route: 042
  7. RED BLOOD CELLS [Concomitant]
     Route: 042
  8. FLUOXETINE HCL [Concomitant]
     Route: 048
     Dates: start: 20060608, end: 20060611
  9. OMEPRAZOLE [Concomitant]
     Route: 048
     Dates: start: 20060315, end: 20060611
  10. VALACYCLOVIR HCL [Concomitant]
     Route: 048
     Dates: start: 20060608, end: 20060612
  11. FLUCONAZOLE [Concomitant]
     Route: 048
     Dates: start: 20060608, end: 20060612
  12. CIPROFLOXACIN HCL [Concomitant]
     Dates: start: 20060605, end: 20060612
  13. ATORVASTATIN CALCIUM [Concomitant]
     Route: 048
     Dates: start: 20060424, end: 20060611
  14. PAROXETINE HCL [Concomitant]
     Route: 048
     Dates: start: 20060605, end: 20060611
  15. NEUPOGEN [Concomitant]
     Dates: start: 20060519, end: 20060520
  16. RITUXIMAB [Concomitant]

REACTIONS (7)
  - BLOOD PRESSURE INCREASED [None]
  - CARDIAC ARREST [None]
  - EPISTAXIS [None]
  - FLUID OVERLOAD [None]
  - HAEMATURIA [None]
  - MALIGNANT NEOPLASM PROGRESSION [None]
  - WEIGHT INCREASED [None]
